FAERS Safety Report 19186537 (Version 1)
Quarter: 2021Q2

REPORT INFORMATION
  Report Type: Spontaneous
  Country: CA (occurrence: CA)
  Receive Date: 20210428
  Receipt Date: 20210428
  Transmission Date: 20210717
  Serious: Yes (Other)
  Sender: FDA-Public Use
  Company Number: CA-JNJFOC-20210448650

PATIENT
  Age: 34 Year
  Sex: Male
  Weight: 84 kg

DRUGS (5)
  1. ACETAMINOPHEN. [Concomitant]
     Active Substance: ACETAMINOPHEN
     Indication: PREMEDICATION
     Route: 048
  2. REMICADE [Suspect]
     Active Substance: INFLIXIMAB
     Indication: CROHN^S DISEASE
     Route: 042
  3. MESALAMINE EXTENDED RELEASE [Concomitant]
  4. PREDNISONE. [Concomitant]
     Active Substance: PREDNISONE
     Route: 065
  5. MESALAMINE DELAYED RELEASE [Concomitant]
     Active Substance: MESALAMINE
     Route: 065

REACTIONS (8)
  - Hypotension [Unknown]
  - Pain [Unknown]
  - Condition aggravated [Unknown]
  - Abdominal pain [Unknown]
  - Off label use [Unknown]
  - Decreased appetite [Unknown]
  - Clostridium difficile infection [Unknown]
  - Arthralgia [Unknown]
